FAERS Safety Report 4456196-9 (Version None)
Quarter: 2004Q3

REPORT INFORMATION
  Report Type: 
  Country: None (occurrence: None)
  Receive Date: 20040920
  Receipt Date: 20040908
  Transmission Date: 20050211
  Serious: Yes (Hospitalization)
  Sender: FDA-Public Use
  Company Number: 2004PK01514

PATIENT
  Age: 64 Year
  Sex: Female

DRUGS (2)
  1. ARIMIDEX [Suspect]
     Indication: BREAST CANCER
     Dates: start: 20040301
  2. TAMOXIFEN CITRATE [Suspect]
     Indication: BREAST CANCER
     Dates: start: 20031201

REACTIONS (4)
  - ANGIONEUROTIC OEDEMA [None]
  - BIOPSY BONE MARROW ABNORMAL [None]
  - EOSINOPHIL COUNT INCREASED [None]
  - MYOSITIS [None]
